FAERS Safety Report 19730167 (Version 1)
Quarter: 2021Q3

REPORT INFORMATION
  Report Type: Spontaneous
  Country: CH (occurrence: CH)
  Receive Date: 20210820
  Receipt Date: 20210820
  Transmission Date: 20211014
  Serious: Yes (Other)
  Sender: FDA-Public Use
  Company Number: CH-ELI_LILLY_AND_COMPANY-CH202108005395

PATIENT
  Age: 84 Year
  Sex: Female

DRUGS (15)
  1. CIMIFEMIN [Suspect]
     Active Substance: BLACK COHOSH
     Indication: PRODUCT USED FOR UNKNOWN INDICATION
     Dosage: 1 DOSAGE FORM, UNKNOWN
     Route: 048
     Dates: end: 20210714
  2. PURSANA [Concomitant]
     Active Substance: FIG FRUIT OIL\SORBITOL
     Dosage: UNK, UNKNOWN
     Route: 065
     Dates: start: 20210717
  3. FREKA?CLYSS [Concomitant]
     Dosage: UNK, UNKNOWN
     Route: 065
     Dates: start: 20210718
  4. HOVA [Suspect]
     Active Substance: HERBALS\HOPS\VALERIAN
     Indication: PRODUCT USED FOR UNKNOWN INDICATION
     Dosage: UNK UNK, UNKNOWN
     Route: 065
     Dates: end: 20210714
  5. MORPHINE [Concomitant]
     Active Substance: MORPHINE
     Dosage: UNK, UNKNOWN
     Route: 065
     Dates: start: 20210714
  6. QUETIAPIN [Suspect]
     Active Substance: QUETIAPINE
     Indication: PRODUCT USED FOR UNKNOWN INDICATION
     Dosage: 12.5 MG, DAILY
     Route: 048
  7. DAFALGAN [Suspect]
     Active Substance: ACETAMINOPHEN
     Indication: PRODUCT USED FOR UNKNOWN INDICATION
     Dosage: 1000 MG, TID
     Route: 048
     Dates: start: 20210714
  8. FEMARA [Concomitant]
     Active Substance: LETROZOLE
     Dosage: UNK, DAILY
     Route: 065
     Dates: start: 20210518, end: 20210719
  9. CLEXANE [Concomitant]
     Active Substance: ENOXAPARIN SODIUM
     Dosage: UNK, UNKNOWN
     Route: 065
     Dates: start: 20210716
  10. AMLODIPINE [Concomitant]
     Active Substance: AMLODIPINE BESYLATE
     Dosage: UNK, UNKNOWN
     Route: 065
     Dates: start: 20210716
  11. FEMARA [Concomitant]
     Active Substance: LETROZOLE
     Dosage: UNK, DAILY
     Route: 065
     Dates: start: 201905, end: 201907
  12. DENTOHEXIN [Concomitant]
     Dosage: 0.2 %, UNKNOWN
     Route: 065
     Dates: start: 20210715, end: 20210719
  13. CYMBALTA [Suspect]
     Active Substance: DULOXETINE HYDROCHLORIDE
     Indication: PRODUCT USED FOR UNKNOWN INDICATION
     Dosage: 120 MG, UNK
     Route: 048
  14. LAXOBERON [Concomitant]
     Active Substance: SODIUM PICOSULFATE
     Dosage: UNK, UNKNOWN
     Route: 048
     Dates: start: 20210715
  15. LASIX [Concomitant]
     Active Substance: FUROSEMIDE
     Dosage: UNK, UNKNOWN
     Route: 065
     Dates: start: 20210714, end: 20210714

REACTIONS (1)
  - Liver function test abnormal [Not Recovered/Not Resolved]

NARRATIVE: CASE EVENT DATE: 20210715
